FAERS Safety Report 7302272-2 (Version None)
Quarter: 2011Q1

REPORT INFORMATION
  Report Type: 
  Country: None (occurrence: None)
  Receive Date: 20110218
  Receipt Date: 20110207
  Transmission Date: 20110831
  Serious: Yes (Other)
  Sender: FDA-Public Use
  Company Number: VE-GENENTECH-313572

PATIENT
  Sex: Male
  Weight: 75 kg

DRUGS (1)
  1. MABTHERA [Suspect]
     Indication: NON-HODGKIN'S LYMPHOMA
     Dosage: UNK
     Route: 042
     Dates: start: 20110101

REACTIONS (2)
  - VISION BLURRED [None]
  - PYREXIA [None]
